FAERS Safety Report 24891435 (Version 7)
Quarter: 2025Q2

REPORT INFORMATION
  Report Type: Spontaneous
  Country: US (occurrence: US)
  Receive Date: 20250127
  Receipt Date: 20250616
  Transmission Date: 20250717
  Serious: Yes (Other)
  Sender: PFIZER
  Company Number: US-PFIZER INC-202500017873

PATIENT
  Age: 54 Year
  Sex: Female

DRUGS (17)
  1. IBRANCE [Suspect]
     Active Substance: PALBOCICLIB
     Indication: Breast cancer female
     Route: 048
     Dates: start: 20250109
  2. IBRANCE [Suspect]
     Active Substance: PALBOCICLIB
     Route: 048
  3. IBRANCE [Suspect]
     Active Substance: PALBOCICLIB
     Route: 048
  4. IBRANCE [Suspect]
     Active Substance: PALBOCICLIB
     Route: 048
  5. ITOVEBI [Concomitant]
     Active Substance: INAVOLISIB
  6. ADVIL [Concomitant]
     Active Substance: IBUPROFEN
  7. ALBUTEROL SULFATE [Concomitant]
     Active Substance: ALBUTEROL SULFATE
  8. CLARITIN [Concomitant]
     Active Substance: LORATADINE
  9. CLONAZEPAM [Concomitant]
     Active Substance: CLONAZEPAM
  10. FULVESTRANT [Concomitant]
     Active Substance: FULVESTRANT
  11. IRON [Concomitant]
     Active Substance: IRON
  12. LEVETIRACETAM [Concomitant]
     Active Substance: LEVETIRACETAM
  13. LOPERAMIDE [Concomitant]
     Active Substance: LOPERAMIDE
  14. MORPHINE [Concomitant]
     Active Substance: MORPHINE
  15. OMEPRAZOLE [Concomitant]
     Active Substance: OMEPRAZOLE
  16. VITAMIN D3 [Concomitant]
     Active Substance: CHOLECALCIFEROL
  17. ZOLEDRONIC ACID [Concomitant]
     Active Substance: ZOLEDRONIC ACID

REACTIONS (16)
  - Spinal pain [Not Recovered/Not Resolved]
  - Condition aggravated [Not Recovered/Not Resolved]
  - Dyspepsia [Recovering/Resolving]
  - Fatigue [Recovering/Resolving]
  - Platelet count decreased [Not Recovered/Not Resolved]
  - Haemoglobin decreased [Not Recovered/Not Resolved]
  - Diarrhoea [Recovering/Resolving]
  - Stomatitis [Recovered/Resolved]
  - Pelvic pain [Unknown]
  - Condition aggravated [Unknown]
  - Bone pain [Unknown]
  - Back pain [Not Recovered/Not Resolved]
  - Arthralgia [Recovering/Resolving]
  - Bone lesion [Unknown]
  - Oral pain [Not Recovered/Not Resolved]
  - Dry mouth [Not Recovered/Not Resolved]

NARRATIVE: CASE EVENT DATE: 20250101
